FAERS Safety Report 15494795 (Version 1)
Quarter: 2018Q4

REPORT INFORMATION
  Report Type: Spontaneous
  Country: RU (occurrence: RU)
  Receive Date: 20181012
  Receipt Date: 20181012
  Transmission Date: 20190205
  Serious: Yes (Hospitalization)
  Sender: FDA-Public Use
  Company Number: RU-ASTRAZENECA-2018SE28468

PATIENT
  Age: 71 Year
  Sex: Female
  Weight: 60 kg

DRUGS (7)
  1. METOPROLOL. [Suspect]
     Active Substance: METOPROLOL
     Route: 065
  2. VALSARTAN. [Suspect]
     Active Substance: VALSARTAN
     Route: 065
  3. FAZOSTABIL [Suspect]
     Active Substance: ASPIRIN\MAGNESIUM HYDROXIDE
     Route: 065
  4. L-THYROXIN [Suspect]
     Active Substance: LEVOTHYROXINE SODIUM
     Route: 065
  5. BRILINTA [Suspect]
     Active Substance: TICAGRELOR
     Indication: MYOCARDIAL INFARCTION
     Route: 048
     Dates: start: 20180122
  6. EPLERENONE. [Suspect]
     Active Substance: EPLERENONE
     Route: 065
  7. LASOLVAN [Suspect]
     Active Substance: AMBROXOL HYDROCHLORIDE
     Route: 065

REACTIONS (6)
  - Angina unstable [Recovered/Resolved]
  - Blood pressure increased [Recovered/Resolved]
  - Cough [Not Recovered/Not Resolved]
  - Vascular stent occlusion [Recovered/Resolved]
  - Dyspnoea [Not Recovered/Not Resolved]
  - Dyspepsia [Not Recovered/Not Resolved]

NARRATIVE: CASE EVENT DATE: 20180122
